FAERS Safety Report 10871590 (Version 1)
Quarter: 2015Q1

REPORT INFORMATION
  Report Type: Spontaneous
  Country: US (occurrence: None)
  Receive Date: 20150223
  Receipt Date: 20150223
  Transmission Date: 20150721
  Serious: Yes (Other)
  Sender: FDA-Public Use
  Company Number: None

PATIENT
  Age: 53 Year
  Sex: Male
  Weight: 66.68 kg

DRUGS (3)
  1. HORMONES [Suspect]
     Active Substance: UNSPECIFIED INGREDIENT
     Indication: PROSTATE CANCER
     Dates: start: 20131015, end: 20131206
  2. IMRT [Suspect]
     Active Substance: RADIATION THERAPY
     Indication: PROSTATE CANCER
     Dosage: STANDARD OF CARE
     Dates: start: 20131015, end: 20131206
  3. CABAZITAXEL [Suspect]
     Active Substance: CABAZITAXEL
     Indication: PROSTATE CANCER
     Dates: start: 20131015, end: 20131029

REACTIONS (4)
  - Abdominal pain [None]
  - Alanine aminotransferase increased [None]
  - Hepatotoxicity [None]
  - Diarrhoea [None]

NARRATIVE: CASE EVENT DATE: 20131028
